FAERS Safety Report 9699146 (Version 1)
Quarter: 2013Q4

REPORT INFORMATION
  Report Type: Spontaneous
  Country: US (occurrence: US)
  Receive Date: 20131120
  Receipt Date: 20131120
  Transmission Date: 20140711
  Serious: No
  Sender: FDA-Public Use
  Company Number: US-GILEAD-2007-0014694

PATIENT
  Sex: Female
  Weight: 58.97 kg

DRUGS (18)
  1. LETAIRIS [Suspect]
     Indication: PULMONARY ARTERIAL HYPERTENSION
     Route: 048
     Dates: end: 20071209
  2. COREG [Concomitant]
     Dosage: UD
     Route: 048
  3. BIDIL [Concomitant]
     Dosage: UD
     Route: 048
  4. TORSEMIDE [Concomitant]
     Dosage: UD
     Route: 048
  5. DIGOXIN [Concomitant]
     Dosage: UD
     Route: 048
  6. RYTHMOL [Concomitant]
     Dosage: UD
     Route: 048
  7. COUMADIN [Concomitant]
     Dosage: UD
     Route: 048
  8. ASPIRIN [Concomitant]
     Dosage: UD
     Route: 048
  9. AMARYL [Concomitant]
     Dosage: UD
     Route: 048
  10. ACIPHEX [Concomitant]
     Route: 048
  11. COLCHICINE [Concomitant]
     Dosage: UD
     Route: 048
  12. ACTONEL [Concomitant]
     Dosage: UD
     Route: 048
  13. ENULOSE [Concomitant]
     Dosage: UD
     Route: 048
  14. MULTIVITAMIN [Concomitant]
     Dosage: UD
     Route: 048
  15. ADVANCED CALCIUM [Concomitant]
     Dosage: UD
     Route: 048
  16. IRON [Concomitant]
     Dosage: UD
     Route: 048
  17. VITAMIN E [Concomitant]
     Dosage: UD
     Route: 048
  18. CHLOROPHYLL [Concomitant]
     Dosage: UD
     Route: 048

REACTIONS (1)
  - Fluid overload [Unknown]
